FAERS Safety Report 7638175-3 (Version None)
Quarter: 2011Q3

REPORT INFORMATION
  Report Type: 
  Country: None (occurrence: None)
  Receive Date: 20110727
  Receipt Date: 20110719
  Transmission Date: 20111222
  Serious: Yes (Hospitalization, Other)
  Sender: FDA-Public Use
  Company Number: AU-JNJFOC-20110707623

PATIENT
  Sex: Female

DRUGS (19)
  1. INVEGA SUSTENNA [Suspect]
     Indication: PRODUCT USED FOR UNKNOWN INDICATION
     Route: 030
     Dates: start: 20110128
  2. INVEGA SUSTENNA [Suspect]
     Route: 030
     Dates: start: 20110225
  3. MIDAZOLAM HCL [Concomitant]
     Indication: AGITATION
     Route: 065
     Dates: start: 20110716
  4. DIAZEPAM [Concomitant]
     Route: 065
     Dates: start: 20110716
  5. OLANZAPINE [Concomitant]
     Dosage: TOMORROW MORNING
     Route: 065
     Dates: start: 20110717
  6. LORAZEPAM [Concomitant]
     Route: 065
     Dates: start: 20110720
  7. HALOPERIDOL [Concomitant]
     Dosage: AT 13:50
     Route: 042
     Dates: start: 20110716
  8. OLANZAPINE [Concomitant]
     Dosage: AT NIGHT
     Route: 065
     Dates: start: 20110718
  9. INVEGA SUSTENNA [Suspect]
     Route: 030
     Dates: start: 20110617
  10. LORAZEPAM [Concomitant]
     Route: 065
     Dates: start: 20110719, end: 20110719
  11. LORAZEPAM [Concomitant]
     Route: 065
     Dates: start: 20110718, end: 20110718
  12. LORAZEPAM [Concomitant]
     Dosage: AT NIGHT
     Route: 065
     Dates: start: 20110717, end: 20110717
  13. INVEGA SUSTENNA [Suspect]
     Route: 030
     Dates: start: 20110715
  14. INVEGA SUSTENNA [Suspect]
     Route: 030
     Dates: start: 20110506
  15. ZUCLOPENTHIXOL [Concomitant]
     Route: 065
     Dates: start: 20110718
  16. LORAZEPAM [Concomitant]
     Route: 065
     Dates: start: 20110716
  17. DIAZEPAM [Concomitant]
     Indication: AGITATION
     Route: 065
     Dates: start: 20110716
  18. INVEGA SUSTENNA [Suspect]
     Route: 030
     Dates: start: 20110328
  19. QUETIAPINE [Concomitant]
     Dosage: 200
     Route: 065
     Dates: start: 20110716

REACTIONS (3)
  - HOSPITALISATION [None]
  - CONDITION AGGRAVATED [None]
  - TREATMENT NONCOMPLIANCE [None]
